FAERS Safety Report 21322004 (Version 1)
Quarter: 2022Q3

REPORT INFORMATION
  Report Type: Spontaneous
  Country: CA (occurrence: CA)
  Receive Date: 20220912
  Receipt Date: 20220912
  Transmission Date: 20221027
  Serious: Yes (Hospitalization, Other)
  Sender: FDA-Public Use
  Company Number: CA-SAMSUNG BIOEPIS-SB-2022-22198

PATIENT
  Age: 18 Year
  Sex: Male

DRUGS (1)
  1. INFLIXIMAB [Suspect]
     Active Substance: INFLIXIMAB
     Indication: Colitis ulcerative
     Route: 042

REACTIONS (10)
  - COVID-19 [Recovered/Resolved]
  - Condition aggravated [Recovered/Resolved]
  - Eating disorder [Recovered/Resolved]
  - Fatigue [Recovered/Resolved]
  - Gastrointestinal bacterial infection [Recovered/Resolved]
  - Pain [Recovered/Resolved]
  - Weight decreased [Recovered/Resolved]
  - Surgery [Recovered/Resolved]
  - Transfusion [Recovered/Resolved]
  - Off label use [Recovered/Resolved]
